FAERS Safety Report 6883898-7 (Version None)
Quarter: 2010Q3

REPORT INFORMATION
  Report Type: 
  Country: None (occurrence: None)
  Receive Date: 20100729
  Receipt Date: 20100629
  Transmission Date: 20110219
  Serious: Yes (Hospitalization)
  Sender: FDA-Public Use
  Company Number: IT-BRISTOL-MYERS SQUIBB COMPANY-15155146

PATIENT
  Age: 62 Year
  Sex: Male
  Weight: 80 kg

DRUGS (2)
  1. CISPLATIN [Suspect]
     Indication: GASTROOESOPHAGEAL CANCER
     Dosage: RECENT INF:11JUN10 ON DAY 1 OF CYC
     Route: 042
     Dates: start: 20100605
  2. XELODA [Suspect]
     Indication: GASTROOESOPHAGEAL CANCER
     Dosage: FORMULATION TABS ON DAY 1 TO 15 RECENT INF:11JUN10
     Route: 048
     Dates: start: 20100605

REACTIONS (1)
  - ATRIAL FIBRILLATION [None]
